FAERS Safety Report 4535059-4 (Version None)
Quarter: 2004Q4

REPORT INFORMATION
  Report Type: 
  Country: None (occurrence: None)
  Receive Date: 20041222
  Receipt Date: 20041213
  Transmission Date: 20050328
  Serious: Yes (Hospitalization)
  Sender: FDA-Public Use
  Company Number: SE-ROCHE-388966

PATIENT
  Age: 22 Year
  Sex: Female

DRUGS (2)
  1. LARIAM [Suspect]
     Indication: PROPHYLAXIS
     Route: 048
     Dates: start: 20010615, end: 20010615
  2. ZYPREXA [Suspect]
     Route: 048
     Dates: start: 20010615

REACTIONS (2)
  - PSYCHOTIC DISORDER [None]
  - TARDIVE DYSKINESIA [None]
